FAERS Safety Report 4279152-2 (Version None)
Quarter: 2004Q1

REPORT INFORMATION
  Report Type: 
  Country: None (occurrence: None)
  Receive Date: 20040127
  Receipt Date: 20020110
  Transmission Date: 20041129
  Serious: Yes (Other)
  Sender: FDA-Public Use
  Company Number: PHFR2002GB00522

PATIENT
  Age: 77 Year
  Sex: Male

DRUGS (4)
  1. AREDIA [Suspect]
     Indication: OSTEOLYSIS
     Dosage: 60MG/DAY
     Route: 042
  2. MELPHALAN [Concomitant]
     Route: 048
     Dates: end: 20011211
  3. CYCLOPHOSPHAMIDE [Concomitant]
     Dosage: 175 MG, QD
     Route: 048
     Dates: start: 20010723
  4. ONDANSETRON [Concomitant]
     Dosage: 8 MG, BID
     Route: 048

REACTIONS (5)
  - CONJUNCTIVAL HYPERAEMIA [None]
  - CONJUNCTIVAL OEDEMA [None]
  - DIPLOPIA [None]
  - ERYTHEMA OF EYELID [None]
  - EYELID OEDEMA [None]
